FAERS Safety Report 11837286 (Version 7)
Quarter: 2016Q2

REPORT INFORMATION
  Report Type: Spontaneous
  Country: US (occurrence: US)
  Receive Date: 20151215
  Receipt Date: 20160414
  Transmission Date: 20160815
  Serious: No
  Sender: FDA-Public Use
  Company Number: US-PFIZER INC-2015445033

PATIENT
  Age: 6 Decade
  Sex: Male
  Weight: 91 kg

DRUGS (4)
  1. NEURONTIN [Suspect]
     Active Substance: GABAPENTIN
     Indication: NEURALGIA
     Dosage: UNK
  2. ATENOLOL. [Concomitant]
     Active Substance: ATENOLOL
     Indication: BLOOD PRESSURE ABNORMAL
  3. GABAPENTIN. [Suspect]
     Active Substance: GABAPENTIN
     Indication: NEUROPATHY PERIPHERAL
     Dosage: 300MG ONE CAPSULE IN AM ONE AT NOON AND 3 CAPSULE IN PM
  4. NEURONTIN [Suspect]
     Active Substance: GABAPENTIN
     Indication: NERVE INJURY

REACTIONS (10)
  - Blood pressure increased [Not Recovered/Not Resolved]
  - Restless legs syndrome [Unknown]
  - Drug effect incomplete [Unknown]
  - Gout [Not Recovered/Not Resolved]
  - Vitamin D decreased [Unknown]
  - Dysphagia [Unknown]
  - Mineral metabolism disorder [Unknown]
  - Pain [Unknown]
  - Condition aggravated [Not Recovered/Not Resolved]
  - Sleep phase rhythm disturbance [Unknown]
